FAERS Safety Report 8254195-2 (Version None)
Quarter: 2012Q2

REPORT INFORMATION
  Report Type: 
  Country: None (occurrence: None)
  Receive Date: 20120402
  Receipt Date: 20120321
  Transmission Date: 20120825
  Serious: No
  Sender: FDA-Public Use
  Company Number: US-AMGEN-USASP2012010890

PATIENT
  Age: 63 Year
  Sex: Female
  Weight: 104.31 kg

DRUGS (3)
  1. ENBREL [Suspect]
     Indication: GUTTATE PSORIASIS
  2. ENBREL [Suspect]
     Indication: PSORIASIS
  3. ENBREL [Suspect]
     Indication: PSORIATIC ARTHROPATHY
     Dosage: 50 MG, 2 TIMES/WK
     Route: 058
     Dates: start: 20111201, end: 20120220

REACTIONS (4)
  - PAIN [None]
  - DRUG INEFFECTIVE [None]
  - NECK PAIN [None]
  - MUSCULOSKELETAL STIFFNESS [None]
